FAERS Safety Report 4845026-9 (Version None)
Quarter: 2005Q4

REPORT INFORMATION
  Report Type: 
  Country: None (occurrence: None)
  Receive Date: 20051205
  Receipt Date: 20051123
  Transmission Date: 20060501
  Serious: Yes (Hospitalization)
  Sender: FDA-Public Use
  Company Number: 2005GB02299

PATIENT
  Age: 74 Year
  Sex: Male
  Weight: 94 kg

DRUGS (2)
  1. CASODEX [Suspect]
     Indication: PROSTATE CANCER
     Route: 048
  2. DECAPEPTYL [Concomitant]
     Indication: PROSTATE CANCER

REACTIONS (1)
  - THROMBOCYTOPENIA [None]
